FAERS Safety Report 7019916-5 (Version None)
Quarter: 2010Q3

REPORT INFORMATION
  Report Type: 
  Country: None (occurrence: None)
  Receive Date: 20100929
  Receipt Date: 20100920
  Transmission Date: 20110219
  Serious: Yes (Hospitalization)
  Sender: FDA-Public Use
  Company Number: US-JNJFOC-20100906780

PATIENT
  Sex: Female
  Weight: 130.64 kg

DRUGS (17)
  1. SANDOZ FENTANYL TRANSDERMAL SYSTEM [Suspect]
     Indication: BACK PAIN
     Dosage: 100 MCG+ 25MCG
     Route: 062
  2. FENTANYL-100 [Suspect]
     Indication: BACK PAIN
     Dosage: 100MCG + 25MCG
     Route: 062
  3. ADVAIR DISKUS 100/50 [Concomitant]
     Indication: CHRONIC OBSTRUCTIVE PULMONARY DISEASE
     Dosage: 250/50/POWDER/2 PUFFS DAILY
     Route: 055
  4. ALBUTEROL [Concomitant]
     Indication: CHRONIC OBSTRUCTIVE PULMONARY DISEASE
     Dosage: AS NEEDED
     Route: 065
  5. SEROQUEL [Concomitant]
     Indication: DEPRESSION
     Route: 048
  6. SINGULAIR [Concomitant]
     Indication: MULTIPLE ALLERGIES
     Route: 048
  7. TIZANIDINE HCL [Concomitant]
     Indication: MUSCLE SPASMS
     Route: 048
  8. SENNA [Concomitant]
     Indication: CONSTIPATION
     Route: 048
  9. LORTAB [Concomitant]
     Indication: BREAKTHROUGH PAIN
     Dosage: 10/325 TABLET/AS NEEDED
     Route: 048
  10. NEXIUM [Concomitant]
     Indication: GASTRIC DISORDER
     Route: 048
  11. LIPITOR [Concomitant]
     Indication: BLOOD CHOLESTEROL INCREASED
     Route: 048
  12. SULINDAC [Concomitant]
     Indication: SWELLING
     Route: 048
  13. VERAPAMIL [Concomitant]
     Indication: TACHYCARDIA
     Route: 048
  14. ZOLOFT [Concomitant]
     Indication: DEPRESSION
     Route: 048
  15. AMBIEN [Concomitant]
     Indication: SLEEP DISORDER
     Dosage: 10MG/NIGHTLY
     Route: 048
  16. CLONAZEPAM [Concomitant]
     Indication: PANIC ATTACK
     Route: 048
  17. CLONAZEPAM [Concomitant]
     Dosage: NIGHT
     Route: 048

REACTIONS (11)
  - ARTHROPATHY [None]
  - BREAST MASS [None]
  - CONTUSION [None]
  - DRUG DOSE OMISSION [None]
  - FALL [None]
  - INTERVERTEBRAL DISC DISORDER [None]
  - MIGRAINE [None]
  - OEDEMA PERIPHERAL [None]
  - PERONEAL NERVE PALSY [None]
  - PRODUCT ADHESION ISSUE [None]
  - WEIGHT DECREASED [None]
